FAERS Safety Report 4649354-1 (Version None)
Quarter: 2005Q2

REPORT INFORMATION
  Report Type: 
  Country: None (occurrence: None)
  Receive Date: 20050429
  Receipt Date: 20050413
  Transmission Date: 20051028
  Serious: Yes (Death)
  Sender: FDA-Public Use
  Company Number: NL-ABBOTT-05P-114-0297259-00

PATIENT
  Sex: Male

DRUGS (6)
  1. RITONAVIR SOFT GELATIN CAPSULES [Suspect]
     Indication: HIV INFECTION
     Route: 048
     Dates: start: 20041013, end: 20050330
  2. RITONAVIR SOFT GELATIN CAPSULES [Suspect]
  3. TIPRANAVIR [Concomitant]
     Indication: HIV INFECTION
     Route: 048
     Dates: start: 20041013, end: 20050330
  4. FOSAMPRENAVIR [Concomitant]
     Indication: HIV INFECTION
     Dates: start: 20041013, end: 20050330
  5. FTC [Concomitant]
     Indication: HIV INFECTION
     Route: 048
     Dates: start: 20041013, end: 20050330
  6. T20 [Concomitant]
     Indication: DRUG USE FOR UNKNOWN INDICATION
     Dates: start: 20041013, end: 20050330

REACTIONS (2)
  - JAUNDICE [None]
  - MALAISE [None]
